FAERS Safety Report 9397377 (Version 1)
Quarter: 2013Q3

REPORT INFORMATION
  Report Type: Spontaneous
  Country: AU (occurrence: AU)
  Receive Date: 20130712
  Receipt Date: 20130712
  Transmission Date: 20140515
  Serious: Yes (Hospitalization)
  Sender: FDA-Public Use
  Company Number: AU-009507513-1307AUS005395

PATIENT
  Age: 54 Year
  Sex: Male
  Weight: 80 kg

DRUGS (4)
  1. RIBAVIRIN [Suspect]
     Indication: HEPATITIS C
     Dosage: 600 MG, BID
     Route: 048
     Dates: start: 20130516, end: 20130605
  2. TELAPREVIR [Suspect]
     Indication: HEPATITIS C
     Dosage: 750 MG, TID
     Route: 048
     Dates: start: 20130516, end: 20130605
  3. DULOXETINE HYDROCHLORIDE [Concomitant]
     Dosage: 60 MG, QD
     Route: 048
  4. LANTUS [Concomitant]
     Dosage: 14 UNITS, QD
     Route: 058

REACTIONS (1)
  - Cerebellar ischaemia [Recovering/Resolving]
